FAERS Safety Report 8331539-4 (Version None)
Quarter: 2012Q2

REPORT INFORMATION
  Report Type: 
  Country: None (occurrence: None)
  Receive Date: 20120502
  Receipt Date: 20120404
  Transmission Date: 20120825
  Serious: Yes (Other)
  Sender: FDA-Public Use
  Company Number: US-AMGEN-USASP2011043875

PATIENT
  Age: 61 Year
  Sex: Female

DRUGS (4)
  1. METHOTREXATE [Concomitant]
     Dosage: UNK
  2. ENBREL [Suspect]
     Indication: RHEUMATOID ARTHRITIS
     Dosage: 50 MG, QWK
     Route: 058
     Dates: start: 19981101
  3. PLAQUENIL [Concomitant]
     Dosage: UNK
     Dates: start: 19980101
  4. SULFASALAZINE [Concomitant]
     Dosage: UNK
     Dates: start: 19980101

REACTIONS (2)
  - MYCOSIS FUNGOIDES [None]
  - RASH [None]
